FAERS Safety Report 20176208 (Version 1)
Quarter: 2021Q4

REPORT INFORMATION
  Report Type: Spontaneous
  Country: IR (occurrence: IR)
  Receive Date: 20211213
  Receipt Date: 20211213
  Transmission Date: 20220303
  Serious: Yes (Life-Threatening, Hospitalization, Congenital Anomaly, Other)
  Sender: FDA-Public Use
  Company Number: IR-PFIZER INC-202101700934

PATIENT
  Age: 5 Day
  Sex: Male

DRUGS (16)
  1. SERTRALINE HYDROCHLORIDE [Suspect]
     Active Substance: SERTRALINE HYDROCHLORIDE
     Indication: Schizophrenia
     Dosage: UNK
     Route: 064
  2. SERTRALINE HYDROCHLORIDE [Suspect]
     Active Substance: SERTRALINE HYDROCHLORIDE
     Indication: Major depression
  3. SERTRALINE HYDROCHLORIDE [Suspect]
     Active Substance: SERTRALINE HYDROCHLORIDE
     Indication: Anxiety disorder
  4. SERTRALINE HYDROCHLORIDE [Suspect]
     Active Substance: SERTRALINE HYDROCHLORIDE
     Indication: Suicide attempt
  5. RISPERIDONE [Suspect]
     Active Substance: RISPERIDONE
     Indication: Schizophrenia
     Dosage: UNK
     Route: 064
  6. RISPERIDONE [Suspect]
     Active Substance: RISPERIDONE
     Indication: Major depression
  7. RISPERIDONE [Suspect]
     Active Substance: RISPERIDONE
     Indication: Anxiety disorder
  8. RISPERIDONE [Suspect]
     Active Substance: RISPERIDONE
     Indication: Suicide attempt
  9. QUETIAPINE [Suspect]
     Active Substance: QUETIAPINE
     Indication: Schizophrenia
     Dosage: UNK
     Route: 064
  10. QUETIAPINE [Suspect]
     Active Substance: QUETIAPINE
     Indication: Major depression
  11. QUETIAPINE [Suspect]
     Active Substance: QUETIAPINE
     Indication: Anxiety disorder
  12. QUETIAPINE [Suspect]
     Active Substance: QUETIAPINE
     Indication: Suicide attempt
  13. CLONAZEPAM [Suspect]
     Active Substance: CLONAZEPAM
     Indication: Schizophrenia
     Dosage: UNK
     Route: 064
  14. CLONAZEPAM [Suspect]
     Active Substance: CLONAZEPAM
     Indication: Major depression
  15. CLONAZEPAM [Suspect]
     Active Substance: CLONAZEPAM
     Indication: Anxiety disorder
  16. CLONAZEPAM [Suspect]
     Active Substance: CLONAZEPAM
     Indication: Suicide attempt

REACTIONS (13)
  - Maternal exposure during pregnancy [Recovered/Resolved with Sequelae]
  - Neonatal seizure [Recovered/Resolved with Sequelae]
  - Infantile apnoea [Recovered/Resolved with Sequelae]
  - Ammonia increased [Recovered/Resolved with Sequelae]
  - Blood lactic acid increased [Recovered/Resolved with Sequelae]
  - Meconium aspiration syndrome [Recovered/Resolved with Sequelae]
  - Cryptorchism [Recovered/Resolved with Sequelae]
  - Atrial septal defect [Recovered/Resolved with Sequelae]
  - Patent ductus arteriosus [Recovered/Resolved with Sequelae]
  - Jaundice neonatal [Recovered/Resolved with Sequelae]
  - Intraventricular haemorrhage neonatal [Recovered/Resolved with Sequelae]
  - Hydronephrosis [Recovered/Resolved with Sequelae]
  - Tricuspid valve incompetence [Recovered/Resolved with Sequelae]
